FAERS Safety Report 9242885 (Version 1)
Quarter: 2013Q2

REPORT INFORMATION
  Report Type: Spontaneous
  Country: BR (occurrence: BR)
  Receive Date: 20130419
  Receipt Date: 20130419
  Transmission Date: 20140414
  Serious: Yes (Hospitalization, Other)
  Sender: FDA-Public Use
  Company Number: BR-009507513-1304BRA008511

PATIENT
  Age: 47 Year
  Sex: Female
  Weight: 66.5 kg

DRUGS (1)
  1. TRYPTANOL [Suspect]
     Indication: DEPRESSION
     Dosage: 25 MG, UNK
     Route: 048

REACTIONS (8)
  - Cerebrovascular accident [Unknown]
  - Brain operation [Unknown]
  - Caesarean section [Unknown]
  - Convulsion [Not Recovered/Not Resolved]
  - Vitamin D decreased [Unknown]
  - Torticollis [Not Recovered/Not Resolved]
  - Anxiety [Not Recovered/Not Resolved]
  - Insomnia [Not Recovered/Not Resolved]
